FAERS Safety Report 5307816-8 (Version None)
Quarter: 2007Q1

REPORT INFORMATION
  Report Type: 
  Country: None (occurrence: None)
  Receive Date: 20070201
  Receipt Date: 20061210
  Transmission Date: 20070707
  Serious: No
  Sender: FDA-Public Use
  Company Number: 2006PV026638

PATIENT
  Age: 54 Year
  Sex: Female
  Weight: 92.5338 kg

DRUGS (2)
  1. BYETTA [Suspect]
     Indication: DIABETES MELLITUS NON-INSULIN-DEPENDENT
     Dosage: 5 MCG BID SC
     Route: 058
     Dates: start: 20061107
  2. ACTOS [Concomitant]

REACTIONS (4)
  - BLOOD PRESSURE DECREASED [None]
  - EARLY SATIETY [None]
  - ENERGY INCREASED [None]
  - WEIGHT DECREASED [None]
